FAERS Safety Report 11058993 (Version 1)
Quarter: 2015Q2

REPORT INFORMATION
  Report Type: Spontaneous
  Country: US (occurrence: US)
  Receive Date: 20150423
  Receipt Date: 20150423
  Transmission Date: 20150821
  Serious: No
  Sender: FDA-Public Use
  Company Number: US-BAUSCH-BL-2015-000823

PATIENT
  Age: 81 Year
  Sex: Female
  Weight: 69.01 kg

DRUGS (2)
  1. PROLENSA [Suspect]
     Active Substance: BROMFENAC SODIUM
     Dosage: ONE DROP IN THE LEFT EYE
     Route: 047
     Dates: end: 201501
  2. PROLENSA [Suspect]
     Active Substance: BROMFENAC SODIUM
     Indication: EYE DISORDER
     Dosage: ONE DROP IN THE LEFT EYE
     Route: 047
     Dates: start: 201412

REACTIONS (1)
  - Eye pain [Recovering/Resolving]
